FAERS Safety Report 7592361-X (Version None)
Quarter: 2011Q3

REPORT INFORMATION
  Report Type: 
  Country: None (occurrence: None)
  Receive Date: 20110706
  Receipt Date: 20110627
  Transmission Date: 20111222
  Serious: Yes (Other)
  Sender: FDA-Public Use
  Company Number: CH-JNJFOC-20110500750

PATIENT
  Age: 28 Year
  Sex: Female

DRUGS (10)
  1. VENLAFAXINE [Suspect]
     Dosage: 20% OF THE CAPSULE
     Route: 048
  2. VENLAFAXINE [Suspect]
     Indication: EMOTIONAL DISORDER
     Route: 048
  3. ZOLPIDEM [Concomitant]
     Dosage: BEFORE SLEEP
     Route: 048
  4. CONCERTA [Suspect]
     Indication: ATTENTION DEFICIT/HYPERACTIVITY DISORDER
     Route: 048
     Dates: start: 20110215
  5. ZYPREXA [Suspect]
     Indication: PERSONALITY DISORDER
     Dosage: IN THE EVENING
     Route: 048
  6. PROMAZINE HYDROCHLORIDE [Suspect]
     Indication: PERSONALITY DISORDER
     Dosage: ON RESERVE, C.A 1/WEEK
     Route: 048
  7. CONCERTA [Suspect]
     Route: 048
  8. VENLAFAXINE [Suspect]
     Route: 048
     Dates: start: 20080101, end: 20110201
  9. VENLAFAXINE [Suspect]
     Route: 048
     Dates: start: 20110201, end: 20110501
  10. NEXIUM [Concomitant]
     Dosage: IN THE EVENING
     Route: 048

REACTIONS (13)
  - SENSORY DISTURBANCE [None]
  - THERAPY CESSATION [None]
  - HEADACHE [None]
  - PARAESTHESIA [None]
  - PYREXIA [None]
  - CARDIOVASCULAR DISORDER [None]
  - THINKING ABNORMAL [None]
  - DISTURBANCE IN ATTENTION [None]
  - ASTHENIA [None]
  - CYANOSIS [None]
  - DYSPNOEA [None]
  - NERVOUSNESS [None]
  - MUSCLE TWITCHING [None]
